FAERS Safety Report 8251505-7 (Version None)
Quarter: 2012Q2

REPORT INFORMATION
  Report Type: 
  Country: None (occurrence: None)
  Receive Date: 20120402
  Receipt Date: 20120209
  Transmission Date: 20120825
  Serious: No
  Sender: FDA-Public Use
  Company Number: US-AMGEN-USASP2011049017

PATIENT
  Age: 81 Year
  Sex: Male

DRUGS (19)
  1. FEXOFENADINE HCL [Concomitant]
  2. HYDROXYZINE [Concomitant]
  3. TEKTURNA [Concomitant]
  4. XYZAL [Concomitant]
  5. BENADRYL [Concomitant]
  6. LABETALOL HCL [Concomitant]
  7. ROPINIROLE [Concomitant]
  8. VYTORIN [Concomitant]
  9. ASPIRIN [Concomitant]
  10. CLOBETASOL                         /00337102/ [Concomitant]
  11. ECONAZOLE NITRATE [Concomitant]
  12. FUROSEMIDE [Concomitant]
  13. DAPSONE [Concomitant]
  14. PREVACID [Concomitant]
  15. TYLENOL (CAPLET) [Concomitant]
  16. ALPHAGAN [Concomitant]
  17. IRON [Concomitant]
  18. ARANESP [Suspect]
     Indication: RENAL FAILURE CHRONIC
     Dosage: 300 MUG, Q3WK
     Dates: start: 20110906
  19. MAGNESIUM [Concomitant]

REACTIONS (3)
  - DEHYDRATION [None]
  - DIARRHOEA [None]
  - ASTHENIA [None]
